FAERS Safety Report 10182709 (Version 1)
Quarter: 2014Q2

REPORT INFORMATION
  Report Type: Spontaneous
  Country: US (occurrence: None)
  Receive Date: 20140519
  Receipt Date: 20140519
  Transmission Date: 20141212
  Serious: Yes (Disabling)
  Sender: FDA-Public Use
  Company Number: None

PATIENT
  Age: 53 Year
  Sex: Female
  Weight: 51.71 kg

DRUGS (1)
  1. VENLAFAXINE XR [Suspect]
     Indication: ANXIETY
     Route: 048

REACTIONS (25)
  - Anxiety [None]
  - Disease recurrence [None]
  - Malaise [None]
  - Therapy change [None]
  - Fatigue [None]
  - Headache [None]
  - Confusional state [None]
  - Cognitive disorder [None]
  - Tachycardia [None]
  - Ventricular extrasystoles [None]
  - Respiratory disorder [None]
  - Affect lability [None]
  - Insomnia [None]
  - Influenza like illness [None]
  - Chest pain [None]
  - Heart rate irregular [None]
  - Disturbance in attention [None]
  - Metabolic disorder [None]
  - Obsessive-compulsive disorder [None]
  - Paranoia [None]
  - Thinking abnormal [None]
  - Amnesia [None]
  - Depressive symptom [None]
  - Feeling abnormal [None]
  - Drug withdrawal syndrome [None]
